FAERS Safety Report 6528037-7 (Version None)
Quarter: 2010Q1

REPORT INFORMATION
  Report Type: 
  Country: None (occurrence: None)
  Receive Date: 20100106
  Receipt Date: 20091230
  Transmission Date: 20100710
  Serious: Yes (Death, Hospitalization)
  Sender: FDA-Public Use
  Company Number: US-BRISTOL-MYERS SQUIBB COMPANY-14918296

PATIENT
  Age: 77 Year
  Sex: Male

DRUGS (19)
  1. CARBOPLATIN [Suspect]
     Indication: NON-SMALL CELL LUNG CANCER STAGE IV
     Dates: start: 20091218, end: 20091218
  2. ABRAXANE [Suspect]
     Indication: NON-SMALL CELL LUNG CANCER STAGE IV
     Dates: start: 20091218, end: 20091218
  3. DEXAMETHASONE [Concomitant]
  4. METOCLOPRAMIDE [Concomitant]
  5. PROCHLORPERAZINE [Concomitant]
  6. LANTUS [Concomitant]
  7. INSULIN [Concomitant]
  8. EZETIMIBE [Concomitant]
  9. RAMIPRIL [Concomitant]
  10. GLIPIZIDE [Concomitant]
  11. LIPITOR [Concomitant]
  12. POTASSIUM [Concomitant]
  13. ESOMEPRAZOLE SODIUM (NEXIUM) [Concomitant]
  14. FERROUS SULFATE TAB [Concomitant]
  15. MULTI-VITAMIN [Concomitant]
  16. ASPIRIN [Concomitant]
  17. ALBUTEROL [Concomitant]
  18. ACETYLCYSTEINE [Concomitant]
  19. OXYGEN [Concomitant]

REACTIONS (3)
  - DEATH [None]
  - FEBRILE NEUTROPENIA [None]
  - HAEMOPTYSIS [None]
